FAERS Safety Report 7427301-7 (Version None)
Quarter: 2011Q2

REPORT INFORMATION
  Report Type: 
  Country: None (occurrence: None)
  Receive Date: 20110420
  Receipt Date: 20110417
  Transmission Date: 20111010
  Serious: No
  Sender: FDA-Public Use
  Company Number: US-PFIZER INC-2011083855

PATIENT
  Sex: Female
  Weight: 63.492 kg

DRUGS (3)
  1. ADVIL LIQUI-GELS [Concomitant]
     Indication: ASTHMA
     Dosage: UNK
  2. ALPRAZOLAM [Suspect]
     Indication: ANXIETY DISORDER
  3. ALPRAZOLAM [Suspect]
     Indication: PANIC DISORDER
     Dosage: 1 MG, 4X/DAY
     Route: 048
     Dates: start: 20010101, end: 20110417

REACTIONS (3)
  - RASH [None]
  - DRUG INEFFECTIVE [None]
  - SOMNOLENCE [None]
